FAERS Safety Report 9592041 (Version 2)
Quarter: 2014Q1

REPORT INFORMATION
  Report Type: Spontaneous
  Country: US (occurrence: US)
  Receive Date: 20131004
  Receipt Date: 20140214
  Transmission Date: 20141002
  Serious: No
  Sender: FDA-Public Use
  Company Number: US-BIOGENIDEC-2013BI092106

PATIENT
  Age: 59 Year
  Sex: Female

DRUGS (2)
  1. AVONEX [Suspect]
     Indication: MULTIPLE SCLEROSIS
     Route: 030
  2. AVONEX [Suspect]
     Indication: MULTIPLE SCLEROSIS
     Route: 030
     Dates: start: 20130130

REACTIONS (13)
  - Fall [Recovered/Resolved]
  - Gait disturbance [Recovered/Resolved]
  - Back disorder [Recovered/Resolved]
  - Posture abnormal [Recovered/Resolved]
  - Spondylitis [Recovered/Resolved]
  - Carpal tunnel syndrome [Recovered/Resolved]
  - Ear infection [Recovered/Resolved]
  - Balance disorder [Recovered/Resolved]
  - Migraine [Recovered/Resolved]
  - Headache [Recovered/Resolved with Sequelae]
  - Muscle spasms [Recovered/Resolved]
  - Pain in extremity [Recovered/Resolved with Sequelae]
  - Injection site erythema [Not Recovered/Not Resolved]
